FAERS Safety Report 20723612 (Version 1)
Quarter: 2022Q2

REPORT INFORMATION
  Report Type: Report from Study
  Country: CA (occurrence: CA)
  Receive Date: 20220419
  Receipt Date: 20220419
  Transmission Date: 20220720
  Serious: Yes (Other)
  Sender: FDA-Public Use
  Company Number: CA-JNJFOC-20220326423

PATIENT
  Age: 86 Year
  Sex: Female
  Weight: 54.480 kg

DRUGS (1)
  1. SIMPONI [Suspect]
     Active Substance: GOLIMUMAB
     Indication: Rheumatoid arthritis
     Route: 058

REACTIONS (7)
  - Skin cancer [Unknown]
  - Coronary artery bypass [Unknown]
  - Dizziness postural [Unknown]
  - Dyspnoea [Unknown]
  - Anxiety [Unknown]
  - Musculoskeletal stiffness [Unknown]
  - Mood altered [Unknown]

NARRATIVE: CASE EVENT DATE: 20220330
